FAERS Safety Report 11434015 (Version 1)
Quarter: 2015Q3

REPORT INFORMATION
  Report Type: Spontaneous
  Country: US (occurrence: US)
  Receive Date: 20150831
  Receipt Date: 20150831
  Transmission Date: 20151125
  Serious: No
  Sender: FDA-Public Use
  Company Number: US-ASTRAZENECA-2015SE17150

PATIENT
  Age: 64 Year
  Sex: Male
  Weight: 90.7 kg

DRUGS (11)
  1. CRESTOR [Suspect]
     Active Substance: ROSUVASTATIN CALCIUM
     Indication: BLOOD CHOLESTEROL INCREASED
     Route: 048
     Dates: start: 199906, end: 201307
  2. BUPROPION HYDROCHLORIDE. [Concomitant]
     Active Substance: BUPROPION HYDROCHLORIDE
     Dates: start: 1999
  3. CRESTOR [Suspect]
     Active Substance: ROSUVASTATIN CALCIUM
     Indication: BLOOD CHOLESTEROL INCREASED
     Route: 048
  4. CRESTOR [Suspect]
     Active Substance: ROSUVASTATIN CALCIUM
     Indication: BLOOD CHOLESTEROL INCREASED
     Route: 048
     Dates: start: 2013
  5. METFORMIN [Concomitant]
     Active Substance: METFORMIN HYDROCHLORIDE
     Dates: start: 1999
  6. METOPROLOL [Concomitant]
     Active Substance: METOPROLOL
     Indication: HYPERTENSION
     Dates: start: 1999
  7. GLIPIZIDE. [Concomitant]
     Active Substance: GLIPIZIDE
     Dates: start: 1999
  8. RAMIPRIL. [Concomitant]
     Active Substance: RAMIPRIL
     Dates: start: 1999
  9. TAMSULOSIN [Concomitant]
     Active Substance: TAMSULOSIN
     Dates: start: 1999
  10. EPINEPHRINE. [Concomitant]
     Active Substance: EPINEPHRINE
  11. FINASTERIDE. [Concomitant]
     Active Substance: FINASTERIDE
     Dates: start: 1999

REACTIONS (15)
  - Polyuria [Unknown]
  - Diabetes mellitus [Unknown]
  - Angina pectoris [Unknown]
  - Depression [Unknown]
  - Constipation [Unknown]
  - Hyperglycaemia [Unknown]
  - Hypoglycaemia [Unknown]
  - Polydipsia [Unknown]
  - Obesity [Unknown]
  - Cardiovascular disorder [Unknown]
  - Headache [Unknown]
  - Hypertension [Unknown]
  - Myalgia [Unknown]
  - Arrhythmia [Unknown]
  - Coronary artery disease [Unknown]

NARRATIVE: CASE EVENT DATE: 1999
